FAERS Safety Report 6727524-6 (Version None)
Quarter: 2010Q2

REPORT INFORMATION
  Report Type: 
  Country: None (occurrence: None)
  Receive Date: 20100517
  Receipt Date: 20100503
  Transmission Date: 20101027
  Serious: Yes (Hospitalization)
  Sender: FDA-Public Use
  Company Number: PHHY2010US29222

PATIENT
  Sex: Male

DRUGS (4)
  1. AFINITOR [Suspect]
     Indication: PANCREATITIS
     Dosage: 10 MG DAILY
     Route: 048
     Dates: start: 20100305, end: 20100503
  2. FENTANYL [Concomitant]
  3. OXYCONTIN [Concomitant]
  4. FENTORA [Concomitant]

REACTIONS (3)
  - ASTHENIA [None]
  - CONFUSIONAL STATE [None]
  - TRANSIENT ISCHAEMIC ATTACK [None]
